FAERS Safety Report 10236041 (Version 1)
Quarter: 2014Q2

REPORT INFORMATION
  Report Type: Spontaneous
  Country: US (occurrence: None)
  Receive Date: 20140612
  Receipt Date: 20140612
  Transmission Date: 20141212
  Serious: Yes (Hospitalization)
  Sender: FDA-Public Use
  Company Number: None

PATIENT
  Age: 61 Year
  Sex: Female
  Weight: 87.5 kg

DRUGS (9)
  1. DEPOCYT [Suspect]
     Indication: METASTASES TO MENINGES
     Route: 037
     Dates: start: 20140521, end: 20140521
  2. DEPOCYT [Suspect]
     Indication: BREAST CANCER METASTATIC
     Route: 037
     Dates: start: 20140521, end: 20140521
  3. TUMS [Concomitant]
  4. NEXIUM [Concomitant]
  5. LACTOBACILLUS [Concomitant]
  6. LEVETERACITAM [Concomitant]
  7. LOPERAMIDE [Concomitant]
  8. MORPHINE SULFATE [Concomitant]
  9. ZOLPIDEM [Concomitant]

REACTIONS (7)
  - Chills [None]
  - Pyrexia [None]
  - Headache [None]
  - Diarrhoea [None]
  - Fatigue [None]
  - CSF white blood cell count increased [None]
  - Infection [None]
